FAERS Safety Report 8270209-8 (Version None)
Quarter: 2012Q2

REPORT INFORMATION
  Report Type: 
  Country: None (occurrence: None)
  Receive Date: 20120410
  Receipt Date: 20120409
  Transmission Date: 20120825
  Serious: Yes (Disabling, Other)
  Sender: FDA-Public Use
  Company Number: PHEH2010US03502

PATIENT
  Sex: Female

DRUGS (19)
  1. PROTONIX [Concomitant]
  2. LYRICA [Concomitant]
  3. CHEMOTHERAPEUTICS [Concomitant]
  4. PRILOSEC [Concomitant]
  5. ATIVAN [Concomitant]
  6. PREMARIN [Concomitant]
  7. DURAGESIC-100 [Concomitant]
     Dosage: 100 UG, UNK
  8. ZOMETA [Suspect]
     Indication: NEOPLASM MALIGNANT
     Dosage: 4 MG, QMO
     Route: 042
     Dates: start: 20060601, end: 20080601
  9. FENTANYL CITRATE [Concomitant]
  10. LORAZEPAM [Concomitant]
  11. MORPHINE SULFATE [Concomitant]
  12. ZELNORM                                 /USA/ [Concomitant]
  13. SKELAXIN [Concomitant]
  14. DARVOCET-N 50 [Concomitant]
     Dosage: 100 MG, UNK
  15. RADIATION THERAPY [Concomitant]
  16. REGLAN [Concomitant]
  17. ALTACE [Concomitant]
  18. OXYCODONE HCL [Concomitant]
  19. PERCOCET [Concomitant]
     Dosage: 325 MG, UNK

REACTIONS (52)
  - INTERVERTEBRAL DISC DEGENERATION [None]
  - OSTEOSCLEROSIS [None]
  - GENERAL PHYSICAL HEALTH DETERIORATION [None]
  - HYPERLIPIDAEMIA [None]
  - ARTHRALGIA [None]
  - HYPOAESTHESIA [None]
  - OSTEOARTHRITIS [None]
  - INFECTION [None]
  - BONE LOSS [None]
  - OSTEOLYSIS [None]
  - HAEMORRHOIDS [None]
  - LOOSE TOOTH [None]
  - BRONCHITIS [None]
  - GASTROOESOPHAGEAL REFLUX DISEASE [None]
  - THIRST [None]
  - NECK PAIN [None]
  - KYPHOSIS [None]
  - DEFORMITY [None]
  - TOOTH IMPACTED [None]
  - HYPERTENSION [None]
  - IMPAIRED HEALING [None]
  - RIB FRACTURE [None]
  - RADICULOPATHY [None]
  - DIVERTICULUM [None]
  - SINUSITIS [None]
  - ULCER [None]
  - PARAESTHESIA [None]
  - BONE PAIN [None]
  - OSTEONECROSIS OF JAW [None]
  - ANXIETY [None]
  - OSTEOPOROSIS [None]
  - CONSTIPATION [None]
  - IMPAIRED GASTRIC EMPTYING [None]
  - NASAL TURBINATE ABNORMALITY [None]
  - LUMBAR SPINAL STENOSIS [None]
  - BACK PAIN [None]
  - DIZZINESS [None]
  - URINARY INCONTINENCE [None]
  - PAIN [None]
  - EMOTIONAL DISTRESS [None]
  - DENTAL CARIES [None]
  - FIBROUS DYSPLASIA OF JAW [None]
  - COMPRESSION FRACTURE [None]
  - NASAL SEPTUM DEVIATION [None]
  - DYSPNOEA EXERTIONAL [None]
  - TOOTH ABSCESS [None]
  - ATELECTASIS [None]
  - CONTUSION [None]
  - SPONDYLOLISTHESIS [None]
  - ABDOMINAL PAIN [None]
  - COSTOCHONDRITIS [None]
  - DECREASED APPETITE [None]
